FAERS Safety Report 9879611 (Version 1)
Quarter: 2014Q1

REPORT INFORMATION
  Report Type: Spontaneous
  Country: GB (occurrence: GB)
  Receive Date: 20140206
  Receipt Date: 20140206
  Transmission Date: 20141002
  Serious: Yes (Other)
  Sender: FDA-Public Use
  Company Number: GB-ACTAVIS-2014-01359

PATIENT
  Age: 73 Year
  Sex: Male

DRUGS (4)
  1. PHENYTOIN (AMALLC) [Suspect]
     Indication: EPILEPSY
     Dosage: 400 MG, DAILY
     Route: 042
  2. PHENYTOIN (AMALLC) [Suspect]
     Dosage: 500 MG OVER 30 MIN
     Route: 042
  3. PHENOBARBITAL SODIUM [Concomitant]
     Indication: EPILEPSY
     Dosage: 30 MG, TID
  4. PHENOBARBITAL SODIUM [Concomitant]
     Dosage: 90 MG START DOSE
     Route: 042

REACTIONS (1)
  - Purple glove syndrome [Recovering/Resolving]
